FAERS Safety Report 23802579 (Version 1)
Quarter: 2024Q2

REPORT INFORMATION
  Report Type: Spontaneous
  Country: US (occurrence: US)
  Receive Date: 20240501
  Receipt Date: 20240501
  Transmission Date: 20240716
  Serious: No
  Sender: FDA-Public Use
  Company Number: US-BRISTOL-MYERS SQUIBB COMPANY-2024-067974

PATIENT
  Age: 54 Year
  Sex: Female

DRUGS (1)
  1. ELIQUIS [Suspect]
     Active Substance: APIXABAN
     Indication: Heart valve replacement
     Dates: start: 20240412

REACTIONS (3)
  - Haemorrhoids [Recovered/Resolved]
  - Haemorrhoidal haemorrhage [Recovered/Resolved]
  - Off label use [Unknown]
